FAERS Safety Report 8132890-3 (Version None)
Quarter: 2012Q1

REPORT INFORMATION
  Report Type: 
  Country: None (occurrence: None)
  Receive Date: 20120103
  Receipt Date: 20111114
  Transmission Date: 20120608
  Serious: No
  Sender: FDA-Public Use
  Company Number: AE-2011-003458

PATIENT
  Age: 57 Year
  Sex: Male
  Weight: 113.3993 kg

DRUGS (5)
  1. INCIVEK [Suspect]
     Dosage: 2250 (750 MG,1 IN 8 HR),ORAL
     Route: 048
     Dates: start: 20111111
  2. COPEGUS [Concomitant]
  3. LISINOPRIL/HCT (PRINZIDE) [Concomitant]
  4. AMLODIPINE [Concomitant]
  5. PEGASYS [Concomitant]

REACTIONS (1)
  - DYSGEUSIA [None]
